FAERS Safety Report 12556226 (Version 2)
Quarter: 2016Q3

REPORT INFORMATION
  Report Type: Spontaneous
  Country: FR (occurrence: FR)
  Receive Date: 20160714
  Receipt Date: 20160727
  Transmission Date: 20161109
  Serious: Yes (Death, Congenital Anomaly, Other)
  Sender: FDA-Public Use
  Company Number: FR-RECORDATI RARE DISEASES-FR-R13005-16-00172

PATIENT
  Sex: Female
  Weight: .72 kg

DRUGS (7)
  1. DACTINOMYCIN [Suspect]
     Active Substance: DACTINOMYCIN
     Indication: RHABDOMYOSARCOMA
     Route: 064
  2. IFEX [Suspect]
     Active Substance: IFOSFAMIDE
     Indication: RHABDOMYOSARCOMA
     Route: 064
  3. URICOZYME [Concomitant]
     Active Substance: RASBURICASE
     Indication: PRODUCT USED FOR UNKNOWN INDICATION
     Route: 064
  4. HEPARIN [Concomitant]
     Active Substance: HEPARIN SODIUM
     Indication: PRODUCT USED FOR UNKNOWN INDICATION
     Route: 064
  5. PARACETAMOL [Concomitant]
     Active Substance: ACETAMINOPHEN
     Indication: PRODUCT USED FOR UNKNOWN INDICATION
     Route: 064
  6. UROMITEXAN [Concomitant]
     Active Substance: MESNA
     Indication: PRODUCT USED FOR UNKNOWN INDICATION
     Route: 064
  7. VINCRISTINE [Suspect]
     Active Substance: VINCRISTINE
     Indication: RHABDOMYOSARCOMA
     Route: 064

REACTIONS (12)
  - Baseline foetal heart rate variability disorder [Fatal]
  - Cerebral haemorrhage neonatal [Fatal]
  - Premature baby [Fatal]
  - Foetal growth restriction [Fatal]
  - Foetal hypokinesia [Fatal]
  - Placental necrosis [Unknown]
  - Foetal distress syndrome [Fatal]
  - Foetal exposure during pregnancy [Unknown]
  - Intraventricular haemorrhage neonatal [Fatal]
  - Neonatal anuria [Fatal]
  - Foetal heart rate deceleration abnormality [Fatal]
  - Oligohydramnios [Fatal]
